FAERS Safety Report 5582862-8 (Version None)
Quarter: 2007Q4

REPORT INFORMATION
  Report Type: 
  Country: None (occurrence: None)
  Receive Date: 20071231
  Receipt Date: 20071227
  Transmission Date: 20080405
  Serious: Yes (Hospitalization)
  Sender: FDA-Public Use
  Company Number: SP01726

PATIENT
  Age: 33 Year
  Sex: Male

DRUGS (2)
  1. VISICOL [Suspect]
     Indication: ENDOSCOPY LARGE BOWEL
     Dosage: 50 G (50TAB), ORAL
     Route: 048
     Dates: start: 20071127, end: 20071127
  2. SODIUM PICOSULFATE [Concomitant]

REACTIONS (2)
  - ILEUS [None]
  - PYREXIA [None]
